FAERS Safety Report 19395456 (Version 1)
Quarter: 2021Q2

REPORT INFORMATION
  Report Type: Spontaneous
  Country: US (occurrence: US)
  Receive Date: 20210609
  Receipt Date: 20210609
  Transmission Date: 20210717
  Serious: No
  Sender: FDA-Public Use
  Company Number: US-AIMMUNE THERAPEUTICS, INC.-2021AIMT00310

PATIENT

DRUGS (5)
  1. GUANFACINE. [Concomitant]
     Active Substance: GUANFACINE
  2. MULTIVITAMIN GUMMY BEARS [Concomitant]
  3. PALFORZIA [Suspect]
     Active Substance: PEANUT
     Indication: FOOD ALLERGY
     Dosage: 160 MG, 1X/DAY
     Route: 048
  4. AUVI?Q [Concomitant]
     Active Substance: EPINEPHRINE
  5. RITALIN [Concomitant]
     Active Substance: METHYLPHENIDATE HYDROCHLORIDE
     Indication: ATTENTION DEFICIT HYPERACTIVITY DISORDER

REACTIONS (1)
  - Rash pruritic [Recovered/Resolved]

NARRATIVE: CASE EVENT DATE: 20210513
